FAERS Safety Report 23029683 (Version 1)
Quarter: 2023Q4

REPORT INFORMATION
  Report Type: Spontaneous
  Country: GB (occurrence: GB)
  Receive Date: 20231004
  Receipt Date: 20231004
  Transmission Date: 20240110
  Serious: Yes (Other)
  Sender: FDA-Public Use
  Company Number: None

PATIENT

DRUGS (1)
  1. PRAMIPEXOLE [Suspect]
     Active Substance: PRAMIPEXOLE
     Indication: Product used for unknown indication
     Dosage: 88 MICROGRAMS; ;
     Dates: start: 20230814, end: 20230901

REACTIONS (6)
  - Liver function test abnormal [Recovering/Resolving]
  - Cardiac failure [Unknown]
  - Hyponatraemia [Unknown]
  - COVID-19 [Unknown]
  - Inappropriate antidiuretic hormone secretion [Unknown]
  - Hypervolaemia [Unknown]

NARRATIVE: CASE EVENT DATE: 20230831
